FAERS Safety Report 22168970 (Version 3)
Quarter: 2023Q2

REPORT INFORMATION
  Report Type: Spontaneous
  Country: RU (occurrence: RU)
  Receive Date: 20230403
  Receipt Date: 20230427
  Transmission Date: 20230722
  Serious: Yes (Other)
  Sender: FDA-Public Use
  Company Number: RU-ABBOTT-2023A-1361711

PATIENT
  Age: 4 Year
  Sex: Female
  Weight: 16.7 kg

DRUGS (14)
  1. CREON [Suspect]
     Active Substance: PANCRELIPASE AMYLASE\PANCRELIPASE LIPASE\PANCRELIPASE PROTEASE
     Indication: Cystic fibrosis
     Dosage: DAILY DOSE: 28 CAPSULE
     Dates: start: 20230216, end: 20230217
  2. CREON [Suspect]
     Active Substance: PANCRELIPASE AMYLASE\PANCRELIPASE LIPASE\PANCRELIPASE PROTEASE
     Indication: Cystic fibrosis
     Route: 050
  3. Acc 100 [Concomitant]
     Indication: Cystic fibrosis
     Route: 048
  4. SODIUM CHLORIDE [Concomitant]
     Active Substance: SODIUM CHLORIDE
     Indication: Cystic fibrosis
     Dosage: HYPERTONIC SODIUM CHLORIDE SOLUTION 7% (GYANEB)
     Route: 055
  5. URSODIOL [Concomitant]
     Active Substance: URSODIOL
     Indication: Cystic fibrosis
     Route: 048
  6. FENOTEROL HYDROBROMIDE\IPRATROPIUM BROMIDE [Concomitant]
     Active Substance: FENOTEROL HYDROBROMIDE\IPRATROPIUM BROMIDE
     Indication: Cystic fibrosis
     Dosage: IPRATROPIUM BROMIDE + FENOTEROL (BERODUAL); UNIT DOSE: 10 DROP
     Route: 055
  7. VITAMIN A [Concomitant]
     Active Substance: VITAMIN A
     Indication: Cystic fibrosis
     Dosage: UNIT DOSE + DAILY DOSE: 1 CAPSULE
     Route: 048
  8. VITAMIN A [Concomitant]
     Active Substance: VITAMIN A
     Indication: Cystic fibrosis
     Route: 048
  9. VICASOL [Concomitant]
     Indication: Cystic fibrosis
  10. .ALPHA.-TOCOPHEROL [Concomitant]
     Active Substance: .ALPHA.-TOCOPHEROL
     Indication: Cystic fibrosis
     Route: 048
  11. TIGERASE [Concomitant]
     Indication: Cystic fibrosis
     Route: 055
  12. DETRIFEROL [Concomitant]
     Indication: Cystic fibrosis
     Dosage: UNIT DOSE: 3 DROPS
     Route: 048
  13. VITAMIN E [Concomitant]
     Active Substance: .ALPHA.-TOCOPHEROL
     Indication: Cystic fibrosis
     Dosage: ALFA-TOCOPHEROL ACETATE (VITAMIN E)
     Route: 048
  14. HYANEB [Concomitant]
     Indication: Cystic fibrosis
     Route: 055

REACTIONS (6)
  - Asthenia [Recovered/Resolved]
  - Vomiting [Recovered/Resolved]
  - Asthenia [Recovered/Resolved]
  - Lethargy [Recovered/Resolved]
  - Nausea [Recovered/Resolved]
  - Abdominal pain [Recovered/Resolved]

NARRATIVE: CASE EVENT DATE: 20230216
